FAERS Safety Report 8498157-9 (Version None)
Quarter: 2012Q3

REPORT INFORMATION
  Report Type: 
  Country: None (occurrence: None)
  Receive Date: 20120709
  Receipt Date: 20120619
  Transmission Date: 20120928
  Serious: No
  Sender: FDA-Public Use
  Company Number: US-AMGEN-USASP2012038103

PATIENT
  Age: 72 Year
  Sex: Female

DRUGS (2)
  1. ENBREL [Suspect]
     Indication: PSORIASIS
  2. ENBREL [Suspect]
     Indication: PSORIATIC ARTHROPATHY
     Dosage: 50 MG, QWK
     Dates: start: 20120531, end: 20120606

REACTIONS (5)
  - RASH PUSTULAR [None]
  - SINUSITIS [None]
  - PAIN [None]
  - RASH ERYTHEMATOUS [None]
  - URINARY TRACT INFECTION [None]
